FAERS Safety Report 9021305 (Version 1)
Quarter: 2013Q1

REPORT INFORMATION
  Report Type: Spontaneous
  Country: US (occurrence: US)
  Receive Date: 20130119
  Receipt Date: 20130119
  Transmission Date: 20140127
  Serious: No
  Sender: FDA-Public Use
  Company Number: US-ALLERGAN-1202563US

PATIENT
  Age: 69 Year
  Sex: Female

DRUGS (2)
  1. BOTOX? [Suspect]
     Indication: TORTICOLLIS
     Dosage: 320 UNITS, SINGLE
     Route: 030
     Dates: start: 20110322, end: 20110322
  2. BOTOX? [Suspect]
     Dosage: UNK
     Route: 030
     Dates: start: 200805, end: 200805

REACTIONS (5)
  - Oropharyngeal discomfort [Recovered/Resolved]
  - Muscle atrophy [Recovered/Resolved]
  - Dysphagia [Recovered/Resolved]
  - Musculoskeletal stiffness [Recovered/Resolved]
  - Muscular weakness [Recovered/Resolved]
